FAERS Safety Report 18987932 (Version 4)
Quarter: 2021Q3

REPORT INFORMATION
  Report Type: Spontaneous
  Country: US (occurrence: US)
  Receive Date: 20210309
  Receipt Date: 20210927
  Transmission Date: 20211014
  Serious: No
  Sender: FDA-Public Use
  Company Number: US-PFIZER INC-2021034386

PATIENT
  Age: 71 Year
  Sex: Male

DRUGS (2)
  1. PREDNISONE. [Concomitant]
     Active Substance: PREDNISONE
     Dosage: 10 MG, DAILY
  2. XELJANZ XR [Suspect]
     Active Substance: TOFACITINIB CITRATE
     Indication: RHEUMATOID ARTHRITIS
     Dosage: 11 MG, 1X/DAY (ONCE DAILY)
     Route: 048
     Dates: start: 20210109

REACTIONS (5)
  - Product dose omission issue [Unknown]
  - Pharyngitis streptococcal [Unknown]
  - Dyspepsia [Recovering/Resolving]
  - Illness [Unknown]
  - Inflammation [Unknown]

NARRATIVE: CASE EVENT DATE: 2021
